FAERS Safety Report 7481176-9 (Version None)
Quarter: 2011Q2

REPORT INFORMATION
  Report Type: 
  Country: None (occurrence: None)
  Receive Date: 20110516
  Receipt Date: 20110505
  Transmission Date: 20111010
  Serious: Yes (Hospitalization, Other)
  Sender: FDA-Public Use
  Company Number: CZ-SANOFI-AVENTIS-2011SA026457

PATIENT
  Age: 78 Year
  Sex: Female
  Weight: 84 kg

DRUGS (4)
  1. WARFARIN SODIUM [Interacting]
     Indication: ATRIAL FIBRILLATION
     Route: 048
     Dates: start: 20110101
  2. MULTAQ [Suspect]
     Indication: ATRIAL FIBRILLATION
     Route: 048
     Dates: start: 20110203, end: 20110411
  3. TRITACE [Concomitant]
     Indication: HYPERTENSION
     Route: 048
  4. RHEFLUIN FORTE [Concomitant]
     Indication: HYPERTENSION
     Route: 048
     Dates: end: 20110401

REACTIONS (9)
  - INTERNATIONAL NORMALISED RATIO INCREASED [None]
  - DRUG INTERACTION [None]
  - PYREXIA [None]
  - DYSURIA [None]
  - ANAEMIA [None]
  - VOMITING [None]
  - ARTHRALGIA [None]
  - HAEMORRHAGE URINARY TRACT [None]
  - RENAL CYST HAEMORRHAGE [None]
